FAERS Safety Report 13766582 (Version 1)
Quarter: 2017Q3

REPORT INFORMATION
  Report Type: Spontaneous
  Country: ES (occurrence: ES)
  Receive Date: 20170719
  Receipt Date: 20170719
  Transmission Date: 20171127
  Serious: Yes (Death, Hospitalization, Other)
  Sender: FDA-Public Use
  Company Number: ES-ORION CORPORATION ORION PHARMA-ENTC2017-0314

PATIENT
  Age: 71 Year
  Sex: Male

DRUGS (9)
  1. OMEPRAZOL [Concomitant]
     Active Substance: OMEPRAZOLE
     Route: 065
     Dates: end: 20161230
  2. OMNIC [Concomitant]
     Active Substance: TAMSULOSIN HYDROCHLORIDE
     Route: 065
     Dates: start: 20170101
  3. PROMETAX [Suspect]
     Active Substance: RIVASTIGMINE
     Dosage: PATCH 5 CM2
     Route: 030
     Dates: start: 20160212, end: 20161230
  4. AZILECT [Concomitant]
     Active Substance: RASAGILINE MESYLATE
     Route: 065
     Dates: start: 20160212, end: 20161230
  5. PROMETAX [Suspect]
     Active Substance: RIVASTIGMINE
     Route: 030
     Dates: start: 20170104
  6. STALEVO [Suspect]
     Active Substance: CARBIDOPA\ENTACAPONE\LEVODOPA
     Indication: PARKINSON^S DISEASE
     Route: 048
     Dates: start: 20160212, end: 20161230
  7. STALEVO [Suspect]
     Active Substance: CARBIDOPA\ENTACAPONE\LEVODOPA
     Route: 048
     Dates: start: 20170104
  8. SINEMET PLUS [Concomitant]
     Active Substance: CARBIDOPA\LEVODOPA
     Dosage: 25/100 MG
     Route: 065
     Dates: start: 1996
  9. CLEXANE [Concomitant]
     Active Substance: ENOXAPARIN SODIUM
     Route: 065
     Dates: start: 19961201

REACTIONS (4)
  - Asthenia [Unknown]
  - Hypokalaemia [Recovered/Resolved]
  - Death [Fatal]
  - Pneumonia aspiration [Unknown]

NARRATIVE: CASE EVENT DATE: 201607
